FAERS Safety Report 9216456 (Version 1)
Quarter: 2013Q2

REPORT INFORMATION
  Report Type: Spontaneous
  Country: US (occurrence: US)
  Receive Date: 20130408
  Receipt Date: 20130408
  Transmission Date: 20140414
  Serious: Yes (Death)
  Sender: FDA-Public Use
  Company Number: PHEH2013US007896

PATIENT
  Age: 75 Year
  Sex: Female

DRUGS (2)
  1. RECLAST [Suspect]
     Indication: OSTEOPOROSIS
     Dosage: 5 MG/100ML, UNK
     Route: 042
     Dates: start: 20110504
  2. RECLAST [Suspect]
     Dosage: 5 MG/100ML, UNK
     Route: 042
     Dates: start: 20120531

REACTIONS (1)
  - Death [Fatal]
